FAERS Safety Report 7000377-7 (Version None)
Quarter: 2010Q3

REPORT INFORMATION
  Report Type: 
  Country: None (occurrence: None)
  Receive Date: 20100920
  Receipt Date: 20071127
  Transmission Date: 20110219
  Serious: No
  Sender: FDA-Public Use
  Company Number: US-ASTRAZENECA-2006UW23190

PATIENT
  Age: 36 Year
  Sex: Female
  Weight: 138.3 kg

DRUGS (19)
  1. SEROQUEL [Suspect]
     Indication: SCHIZOPHRENIA
     Route: 048
     Dates: start: 19980101, end: 20030101
  2. SEROQUEL [Suspect]
     Indication: DEPRESSION
     Route: 048
     Dates: start: 19980101, end: 20030101
  3. SEROQUEL [Suspect]
     Indication: ANXIETY
     Route: 048
     Dates: start: 19980101, end: 20030101
  4. SEROQUEL [Suspect]
     Dosage: STRENGTH: 100 TO 600 MG
     Route: 048
     Dates: start: 20010821
  5. SEROQUEL [Suspect]
     Dosage: STRENGTH: 100 TO 600 MG
     Route: 048
     Dates: start: 20010821
  6. SEROQUEL [Suspect]
     Dosage: STRENGTH: 100 TO 600 MG
     Route: 048
     Dates: start: 20010821
  7. ADIPEX [Concomitant]
     Indication: WEIGHT CONTROL
     Route: 048
     Dates: start: 20070101
  8. GEODON [Concomitant]
     Route: 048
     Dates: start: 20040101, end: 20070101
  9. RISPERDAL [Concomitant]
     Route: 048
  10. RISPERDAL [Concomitant]
     Dates: start: 20010821
  11. VIOXX [Concomitant]
     Dates: start: 20020228
  12. RANITIDINE [Concomitant]
     Dates: start: 20020228
  13. LORAZEPAM [Concomitant]
     Dates: start: 20020228
  14. CELEXA [Concomitant]
     Dates: start: 20010821
  15. AMBIEN [Concomitant]
     Dates: start: 20020503
  16. PAXIL [Concomitant]
     Dates: start: 20010821
  17. EFFEXOR [Concomitant]
     Dates: start: 20010821
  18. WELLBUTRIN [Concomitant]
     Dates: start: 20010821
  19. PREVACID [Concomitant]
     Dates: start: 20010821

REACTIONS (4)
  - BLOOD CHOLESTEROL INCREASED [None]
  - BLOOD TRIGLYCERIDES INCREASED [None]
  - DIABETES MELLITUS [None]
  - OBESITY [None]
